FAERS Safety Report 17292567 (Version 2)
Quarter: 2020Q2

REPORT INFORMATION
  Report Type: Spontaneous
  Country: US (occurrence: US)
  Receive Date: 20200121
  Receipt Date: 20200429
  Transmission Date: 20200713
  Serious: Yes (Other)
  Sender: FDA-Public Use
  Company Number: US-BAYER-2020-000945

PATIENT
  Age: 37 Year
  Sex: Female

DRUGS (1)
  1. MIRENA [Suspect]
     Active Substance: LEVONORGESTREL
     Indication: CONTRACEPTION
     Dosage: 20 MCG/24HR, CONT
     Route: 015
     Dates: start: 201910, end: 20191224

REACTIONS (4)
  - Device dislocation [None]
  - Genital haemorrhage [None]
  - Abdominal pain lower [None]
  - Medical device pain [None]

NARRATIVE: CASE EVENT DATE: 201912
